FAERS Safety Report 18212617 (Version 1)
Quarter: 2020Q3

REPORT INFORMATION
  Report Type: Spontaneous
  Country: BY (occurrence: US)
  Receive Date: 20200831
  Receipt Date: 20200831
  Transmission Date: 20201103
  Serious: Yes (Death, Life-Threatening, Hospitalization, Other)
  Sender: FDA-Public Use
  Company Number: BY-009507513-2008BGR011496

PATIENT
  Age: 65 Year
  Sex: Male
  Weight: 53.02 kg

DRUGS (6)
  1. PRIMAXIN IV [Suspect]
     Active Substance: CILASTATIN SODIUM\IMIPENEM
     Indication: TUBERCULOSIS
  2. BEDAQUILINE [Concomitant]
     Active Substance: BEDAQUILINE
     Indication: TUBERCULOSIS
     Dosage: 200 (UNIT NOT PROVIDED), QD
     Route: 048
     Dates: start: 20190502, end: 20200621
  3. DELAMANID [Suspect]
     Active Substance: DELAMANID
     Indication: TUBERCULOSIS
     Dosage: 200 (UNIT NOT PROVIDED), QD
     Route: 048
     Dates: start: 20190502, end: 20200621
  4. LINEZOLID. [Concomitant]
     Active Substance: LINEZOLID
     Indication: TUBERCULOSIS
     Dosage: 300 (UNIT NOT PROVIDED), QD
     Route: 048
     Dates: start: 20190502, end: 20200621
  5. CLOFAZIMINE [Concomitant]
     Active Substance: CLOFAZIMINE
     Indication: TUBERCULOSIS
     Dosage: 100 (UNIT NOT PROVIDED), QD
     Route: 048
     Dates: start: 20190502, end: 20200621
  6. AMOXICILLIN (+) CLAVULANATE POTASSIUM [Concomitant]
     Active Substance: AMOXICILLIN\CLAVULANATE POTASSIUM
     Indication: TUBERCULOSIS

REACTIONS (3)
  - Carbon monoxide poisoning [Fatal]
  - Alcohol poisoning [Unknown]
  - Incorrect product administration duration [Unknown]

NARRATIVE: CASE EVENT DATE: 20191017
